FAERS Safety Report 20724740 (Version 2)
Quarter: 2023Q1

REPORT INFORMATION
  Report Type: Spontaneous
  Country: US (occurrence: US)
  Receive Date: 20220419
  Receipt Date: 20230120
  Transmission Date: 20230417
  Serious: Yes (Other)
  Sender: FDA-Public Use
  Company Number: US-SA-SAC20220414001506

PATIENT
  Sex: Female

DRUGS (3)
  1. CERDELGA [Suspect]
     Active Substance: ELIGLUSTAT
     Indication: Gaucher^s disease type I
     Dosage: 3 DF, QD
     Route: 065
  2. CERDELGA [Suspect]
     Active Substance: ELIGLUSTAT
     Dosage: UNK
     Route: 065
  3. CERDELGA [Suspect]
     Active Substance: ELIGLUSTAT
     Dosage: UNK
     Route: 065
     Dates: start: 202203

REACTIONS (10)
  - Syncope [Recovered/Resolved]
  - Glaucoma [Unknown]
  - Anal incontinence [Recovered/Resolved]
  - Urinary incontinence [Recovered/Resolved]
  - Anxiety [Unknown]
  - Depression [Unknown]
  - Palpitations [Recovered/Resolved]
  - Drug interaction [Unknown]
  - Off label use [Unknown]
  - Exposure during pregnancy [Unknown]
